FAERS Safety Report 6959726-8 (Version None)
Quarter: 2010Q3

REPORT INFORMATION
  Report Type: 
  Country: None (occurrence: None)
  Receive Date: 20100901
  Receipt Date: 20100823
  Transmission Date: 20110219
  Serious: No
  Sender: FDA-Public Use
  Company Number: US-BIOGENIDEC-2010BI016219

PATIENT
  Sex: Male

DRUGS (1)
  1. TYSABRI [Suspect]
     Indication: MULTIPLE SCLEROSIS
     Route: 042
     Dates: start: 20100224

REACTIONS (6)
  - BLINDNESS UNILATERAL [None]
  - FALL [None]
  - HEAD INJURY [None]
  - HYPERTENSION [None]
  - MULTIPLE SCLEROSIS [None]
  - WOUND HAEMORRHAGE [None]
